FAERS Safety Report 8474835-2 (Version None)
Quarter: 2012Q2

REPORT INFORMATION
  Report Type: 
  Country: None (occurrence: None)
  Receive Date: 20120628
  Receipt Date: 20120618
  Transmission Date: 20120825
  Serious: Yes (Death, Hospitalization, Other)
  Sender: FDA-Public Use
  Company Number: FR-BRISTOL-MYERS SQUIBB COMPANY-16691446

PATIENT
  Age: 58 Year
  Sex: Male
  Weight: 61 kg

DRUGS (7)
  1. NEVIRAPINE [Suspect]
     Indication: HIV INFECTION
     Dates: start: 20050101
  2. LOPINAVIR [Suspect]
     Indication: HIV INFECTION
  3. DIDANOSINE [Suspect]
     Indication: HIV INFECTION
     Dosage: REDUCED TO 250MG/DAY
  4. EFAVIRENZ [Suspect]
     Indication: HIV INFECTION
     Dates: end: 20050101
  5. ZIDOVUDINE [Suspect]
     Indication: HIV INFECTION
     Dates: start: 20010101
  6. LAMIVUDINE [Suspect]
     Indication: HIV INFECTION
     Dates: start: 20010101
  7. NELFINAVIR MESYLATE [Suspect]
     Indication: HIV INFECTION
     Dates: start: 20010101

REACTIONS (7)
  - TOXICITY TO VARIOUS AGENTS [None]
  - PORTAL HYPERTENSION [None]
  - LIPODYSTROPHY ACQUIRED [None]
  - WEIGHT DECREASED [None]
  - GYNAECOMASTIA [None]
  - OSTEOPOROSIS [None]
  - NODULAR REGENERATIVE HYPERPLASIA [None]
